FAERS Safety Report 14518711 (Version 2)
Quarter: 2018Q1

REPORT INFORMATION
  Report Type: Spontaneous
  Country: JP (occurrence: JP)
  Receive Date: 20180212
  Receipt Date: 20180213
  Transmission Date: 20180509
  Serious: Yes (Hospitalization, Other)
  Sender: FDA-Public Use
  Company Number: JP-009507513-1802JPN000323J

PATIENT
  Age: 77 Year
  Sex: Female

DRUGS (1)
  1. BELSOMRA [Suspect]
     Active Substance: SUVOREXANT
     Indication: INSOMNIA
     Dosage: 15 MG, QD
     Route: 048

REACTIONS (6)
  - Therapeutic response decreased [Unknown]
  - Mental disorder [Unknown]
  - Drug interaction [Unknown]
  - Initial insomnia [Not Recovered/Not Resolved]
  - Tuberculosis [Unknown]
  - Restlessness [Unknown]

NARRATIVE: CASE EVENT DATE: 201801
